FAERS Safety Report 7699317-7 (Version None)
Quarter: 2011Q3

REPORT INFORMATION
  Report Type: 
  Country: None (occurrence: None)
  Receive Date: 20110819
  Receipt Date: 20110809
  Transmission Date: 20111222
  Serious: Yes (Hospitalization, Other)
  Sender: FDA-Public Use
  Company Number: US-BAYER-201036620NA

PATIENT
  Age: 48 Year
  Sex: Female
  Weight: 104.31 kg

DRUGS (17)
  1. YAZ [Suspect]
     Indication: CONTRACEPTION
  2. SINGULAIR [Concomitant]
     Indication: MULTIPLE ALLERGIES
     Dosage: 10 MG, CONT
  3. ALBUTEROL SULFATE AUTOHALER [Concomitant]
     Dosage: UNK UNK, PRN
     Route: 055
  4. DIFLUCAN [Concomitant]
     Indication: FUNGAL INFECTION
  5. CENTRUM [Concomitant]
     Indication: VITAMIN SUPPLEMENTATION
     Dosage: UNK UNK, QD
  6. ZOLPIDEM [Concomitant]
     Indication: SLEEP DISORDER THERAPY
     Dosage: UNK UNK, PRN
  7. NAPROSYN [Concomitant]
     Indication: INFLAMMATION
     Dosage: 500 MG, BID
  8. PROZAC [Concomitant]
     Dosage: 20 MG, CONT
  9. YAZ [Suspect]
     Indication: MENORRHAGIA
  10. CLONAZEPAM [Concomitant]
     Indication: ANXIETY
     Dosage: UNK UNK, PRN
  11. OTHER ANALGESICS AND ANTIPYRETICS [Concomitant]
     Indication: HEADACHE
     Dosage: UNK UNK, PRN
  12. ATENOLOL [Concomitant]
     Indication: HEART RATE INCREASED
     Dosage: 20 MG, CONT
  13. YASMIN [Suspect]
     Indication: CONTRACEPTION
     Dosage: UNK
     Route: 048
     Dates: start: 20051001, end: 20060101
  14. YASMIN [Suspect]
     Indication: MENORRHAGIA
  15. DEPO-PROVERA [Concomitant]
     Indication: CONTRACEPTION
  16. DEPO-PROVERA [Concomitant]
     Indication: MENORRHAGIA
  17. TYLENOL-500 [Concomitant]
     Indication: HEADACHE
     Dosage: UNK UNK, PRN

REACTIONS (8)
  - DEEP VEIN THROMBOSIS [None]
  - PAIN [None]
  - FEAR [None]
  - PULMONARY EMBOLISM [None]
  - VEIN DISORDER [None]
  - PERIPHERAL EMBOLISM [None]
  - MENTAL DISORDER [None]
  - OEDEMA PERIPHERAL [None]
